FAERS Safety Report 12883369 (Version 1)
Quarter: 2016Q4

REPORT INFORMATION
  Report Type: Spontaneous
  Country: US (occurrence: US)
  Receive Date: 20161025
  Receipt Date: 20161025
  Transmission Date: 20170207
  Serious: No
  Sender: FDA-Public Use
  Company Number: US-ACTAVIS-2016-11760

PATIENT
  Sex: Female

DRUGS (1)
  1. TROSPIUM (ACTAVIS LABORATORIES FL) [Suspect]
     Active Substance: TROSPIUM
     Indication: PRODUCT USED FOR UNKNOWN INDICATION
     Dosage: 60 MG, DAILY
     Route: 048
     Dates: start: 2016

REACTIONS (2)
  - Mood altered [Unknown]
  - Constipation [Unknown]

NARRATIVE: CASE EVENT DATE: 2016
